FAERS Safety Report 9281472 (Version 2)
Quarter: 2013Q2

REPORT INFORMATION
  Report Type: Spontaneous
  Country: DE (occurrence: DE)
  Receive Date: 20130509
  Receipt Date: 20130514
  Transmission Date: 20140414
  Serious: Yes (Other)
  Sender: FDA-Public Use
  Company Number: DE-BRISTOL-MYERS SQUIBB COMPANY-18859264

PATIENT
  Sex: Female

DRUGS (1)
  1. ELIQUIS [Suspect]
     Dates: start: 20130427

REACTIONS (1)
  - Cerebrovascular accident [Unknown]
